FAERS Safety Report 7763134-X (Version None)
Quarter: 2011Q3

REPORT INFORMATION
  Report Type: 
  Country: None (occurrence: None)
  Receive Date: 20110920
  Receipt Date: 20110907
  Transmission Date: 20111222
  Serious: Yes (Other)
  Sender: FDA-Public Use
  Company Number: PHEH2011US01963

PATIENT
  Sex: Male
  Weight: 116.1 kg

DRUGS (8)
  1. ASPIRIN [Concomitant]
     Dosage: 81 MG, DAILY
     Route: 048
  2. RISPERDAL [Concomitant]
     Indication: SCHIZOPHRENIA
     Dosage: 3 MG, BID
     Route: 048
  3. LEXAPRO [Concomitant]
     Indication: DEPRESSION
     Dosage: 10 MG, QD
     Route: 048
  4. GLEEVEC [Suspect]
     Indication: CHRONIC MYELOID LEUKAEMIA
     Dosage: 400 MG DAILY
     Route: 048
     Dates: start: 20090209
  5. XANAX [Concomitant]
     Indication: ANXIETY
     Dosage: 0.5 MG, PRN
     Route: 048
  6. HYDROCODONE [Concomitant]
     Indication: PAIN
     Dosage: 4 DF, PRN
     Route: 048
  7. LISINOPRIL [Concomitant]
     Indication: BLOOD PRESSURE
     Dosage: UNK UKN, DAILY
     Route: 048
  8. COGENTIN [Concomitant]
     Indication: SCHIZOPHRENIA
     Dosage: 0.5 MG, BID
     Route: 048

REACTIONS (4)
  - SCHIZOPHRENIA [None]
  - FOOT FRACTURE [None]
  - PAIN IN EXTREMITY [None]
  - MUSCLE SPASMS [None]
